FAERS Safety Report 8896728 (Version 1)
Quarter: 2012Q4

REPORT INFORMATION
  Report Type: Spontaneous
  Country: US (occurrence: None)
  Receive Date: 20121107
  Receipt Date: 20121107
  Transmission Date: 20130627
  Serious: Yes (Hospitalization)
  Sender: FDA-Public Use
  Company Number: None

PATIENT
  Age: 50 Year
  Weight: 82 kg

DRUGS (1)
  1. XOLAIR [Suspect]
     Indication: ASTHMA
     Dates: start: 20120731, end: 20120731

REACTIONS (4)
  - Urticaria [None]
  - Wheezing [None]
  - Swollen tongue [None]
  - Pharyngeal oedema [None]
